FAERS Safety Report 14233441 (Version 1)
Quarter: 2017Q4

REPORT INFORMATION
  Report Type: Spontaneous
  Country: CH (occurrence: CH)
  Receive Date: 20171128
  Receipt Date: 20171128
  Transmission Date: 20180321
  Serious: Yes (Other)
  Sender: FDA-Public Use
  Company Number: CH-ALLERGAN-1767499US

PATIENT
  Age: 48 Year
  Sex: Female
  Weight: 55 kg

DRUGS (10)
  1. PRED FORTE [Suspect]
     Active Substance: PREDNISOLONE ACETATE
     Indication: UVEITIS
     Dosage: 1 GTT, Q1HR
     Route: 047
     Dates: start: 20170909
  2. LACRYCON [Concomitant]
     Indication: CORNEAL EROSION
     Route: 047
  3. ULTRACORTENOL [Concomitant]
     Active Substance: PREDNISOLONE ACETATE
     Indication: UVEITIS
     Route: 047
  4. FLOXAL [Suspect]
     Active Substance: OFLOXACIN
     Indication: CORNEAL EROSION
     Dosage: UNK
     Route: 047
     Dates: start: 20170829, end: 20170831
  5. ISOTRETINOIN UNK [Suspect]
     Active Substance: ISOTRETINOIN
     Indication: ROSACEA
     Dosage: UNK
     Route: 048
     Dates: start: 2011, end: 2017
  6. NEBILET [Concomitant]
     Active Substance: NEBIVOLOL
     Indication: HYPERTENSION
     Dosage: UNK
     Route: 048
  7. COSOPT [Suspect]
     Active Substance: DORZOLAMIDE HYDROCHLORIDE\TIMOLOL MALEATE
     Indication: GLAUCOMA
     Dosage: UNK
     Route: 047
     Dates: start: 20170909
  8. FML FORTE [Suspect]
     Active Substance: FLUOROMETHOLONE
     Indication: CORNEAL EROSION
     Dosage: UNK
     Route: 047
     Dates: start: 20170829, end: 201709
  9. MYDRIATICUM [Suspect]
     Active Substance: TROPICAMIDE
     Indication: PRODUCT USED FOR UNKNOWN INDICATION
     Dosage: UNK
     Route: 047
     Dates: start: 20170911
  10. SAFLUTAN [Suspect]
     Active Substance: TAFLUPROST
     Indication: GLAUCOMA
     Dosage: UNK
     Route: 047
     Dates: start: 2015, end: 20170909

REACTIONS (6)
  - Corneal erosion [Unknown]
  - Uveitis [Unknown]
  - Visual impairment [Recovering/Resolving]
  - Off label use [Unknown]
  - Inappropriate schedule of drug administration [Unknown]
  - Cystoid macular oedema [Unknown]

NARRATIVE: CASE EVENT DATE: 20170829
